FAERS Safety Report 5500323-9 (Version None)
Quarter: 2007Q4

REPORT INFORMATION
  Report Type: 
  Country: None (occurrence: None)
  Receive Date: 20071025
  Receipt Date: 20071016
  Transmission Date: 20080405
  Serious: Yes (Hospitalization)
  Sender: FDA-Public Use
  Company Number: TCI2007A05414

PATIENT
  Age: 78 Year
  Sex: Female

DRUGS (10)
  1. LANSOPRAZOLE [Suspect]
     Indication: GASTRIC ULCER
     Dosage: 30 MG (15 MG, 2 IN 1 D) PER ORAL
     Route: 048
     Dates: start: 20070321, end: 20070413
  2. AMOXICILLIN TRIHYDRATE [Suspect]
     Indication: HELICOBACTER INFECTION
     Dosage: 1500 MG (750 MG, 2 IN 1 D) PER ORAL
     Route: 048
     Dates: start: 20070710, end: 20070713
  3. CLARITHROMYCIN [Suspect]
     Indication: HELICOBACTER INFECTION
     Dosage: 400 MG (200 MG, 2 IN 1 D) PER ORAL
     Route: 048
     Dates: start: 20070710, end: 20070713
  4. RABEPRAZOLE SODIUM [Suspect]
     Indication: HELICOBACTER INFECTION
     Dosage: 10 MG (10 MG, 1 IN 1 D) PER ORAL, 20 MG (10 MG, 2 IN 1 D) PER ORAL
     Route: 048
     Dates: start: 20070414, end: 20070418
  5. RABEPRAZOLE SODIUM [Suspect]
     Indication: HELICOBACTER INFECTION
     Dosage: 10 MG (10 MG, 1 IN 1 D) PER ORAL, 20 MG (10 MG, 2 IN 1 D) PER ORAL
     Route: 048
     Dates: start: 20070702, end: 20070709
  6. RABEPRAZOLE SODIUM [Suspect]
     Indication: HELICOBACTER INFECTION
     Dosage: 10 MG (10 MG, 1 IN 1 D) PER ORAL, 20 MG (10 MG, 2 IN 1 D) PER ORAL
     Route: 048
     Dates: start: 20070710, end: 20070713
  7. MAGNESIUM OXIDE (PREPARATION FOR ORAL USE (NOS) ) [Concomitant]
  8. ETODOLAC [Concomitant]
  9. AZULENE SULFONATE SODIUM/L-GLUTAMINE (PREPARATION FOR ORAL USE (NOS) ) [Concomitant]
  10. FAMOTIDINE [Concomitant]

REACTIONS (7)
  - BLOOD PARATHYROID HORMONE INCREASED [None]
  - ELECTROCARDIOGRAM ABNORMAL [None]
  - HYPERCALCAEMIA [None]
  - HYPERKALAEMIA [None]
  - HYPERPARATHYROIDISM [None]
  - PARATHYROID DISORDER [None]
  - RENAL IMPAIRMENT [None]
